FAERS Safety Report 6307401-5 (Version None)
Quarter: 2009Q3

REPORT INFORMATION
  Report Type: 
  Country: None (occurrence: None)
  Receive Date: 20090810
  Receipt Date: 20081103
  Transmission Date: 20100115
  Serious: Yes (Other)
  Sender: FDA-Public Use
  Company Number: US-JNJFOC-20081100975

PATIENT
  Age: 36 Month
  Sex: Female

DRUGS (4)
  1. IBUPROFEN [Suspect]
     Indication: DRUG USE FOR UNKNOWN INDICATION
  2. DEXTROMETHORPHAN / GUAIFENESIN (TUSSIN DM) UNSPECIFIED [Suspect]
     Indication: NASOPHARYNGITIS
  3. DEXTROMETHORPHAN / GUAIFENESIN (TUSSIN DM) UNSPECIFIED [Suspect]
     Indication: OCULAR HYPERAEMIA
  4. DEXTROMETHORPHAN / GUAIFENESIN (TUSSIN DM) UNSPECIFIED [Suspect]
     Indication: SWELLING

REACTIONS (2)
  - BRONCHIAL HYPERREACTIVITY [None]
  - HYPERSENSITIVITY [None]
